FAERS Safety Report 4285433-9 (Version None)
Quarter: 2004Q1

REPORT INFORMATION
  Report Type: 
  Country: None (occurrence: None)
  Receive Date: 20040202
  Receipt Date: 20040119
  Transmission Date: 20041129
  Serious: Yes (Death)
  Sender: FDA-Public Use
  Company Number: 6005328

PATIENT
  Age: 55 Year
  Sex: Male

DRUGS (2)
  1. SOTALOL HCL [Suspect]
     Indication: ATRIAL FIBRILLATION
     Dosage: ORAL
     Route: 048
     Dates: start: 20001001, end: 20010307
  2. RANITIDINE [Concomitant]

REACTIONS (11)
  - ARRHYTHMIA [None]
  - ATRIAL FIBRILLATION [None]
  - CARDIO-RESPIRATORY ARREST [None]
  - FEELING ABNORMAL [None]
  - HAEMORRHOIDS [None]
  - HYPERTROPHY [None]
  - LOSS OF CONSCIOUSNESS [None]
  - PAIN [None]
  - PUPIL FIXED [None]
  - SYNCOPE [None]
  - WHEEZING [None]
